FAERS Safety Report 8044959-2 (Version None)
Quarter: 2012Q1

REPORT INFORMATION
  Report Type: 
  Country: None (occurrence: None)
  Receive Date: 20120113
  Receipt Date: 20110520
  Transmission Date: 20120608
  Serious: Yes (Other)
  Sender: FDA-Public Use
  Company Number: US-ROCHE-1028922

PATIENT

DRUGS (2)
  1. AVASTIN [Suspect]
     Indication: HEPATIC NEOPLASM MALIGNANT
  2. SORAFENIB [Suspect]
     Indication: HEPATIC NEOPLASM MALIGNANT

REACTIONS (12)
  - ASPARTATE AMINOTRANSFERASE INCREASED [None]
  - BLOOD CREATININE INCREASED [None]
  - VOMITING [None]
  - HYPONATRAEMIA [None]
  - PALMAR-PLANTAR ERYTHRODYSAESTHESIA SYNDROME [None]
  - FATIGUE [None]
  - DEHYDRATION [None]
  - HYPOGLYCAEMIA [None]
  - HYPERTENSION [None]
  - ALANINE AMINOTRANSFERASE INCREASED [None]
  - NAUSEA [None]
  - HYPOPHOSPHATAEMIA [None]
